FAERS Safety Report 5587829-1 (Version None)
Quarter: 2008Q1

REPORT INFORMATION
  Report Type: 
  Country: None (occurrence: None)
  Receive Date: 20080111
  Receipt Date: 20080103
  Transmission Date: 20080703
  Serious: Yes (Other)
  Sender: FDA-Public Use
  Company Number: AU-SP-2006-01612

PATIENT
  Age: 72 Year
  Sex: Female

DRUGS (6)
  1. IMMUCYST [Suspect]
     Indication: CARCINOMA IN SITU OF BLADDER
     Route: 043
  2. IMMUCYST [Suspect]
     Route: 043
  3. EZETIMIBE [Concomitant]
  4. METOPROLOL [Concomitant]
  5. VITAMIN CAP [Concomitant]
  6. CALCIUM CARBONATE [Concomitant]

REACTIONS (7)
  - BLOOD CREATININE INCREASED [None]
  - FIBROSIS [None]
  - FLANK PAIN [None]
  - GRANULOMA [None]
  - PYREXIA [None]
  - TENDERNESS [None]
  - TUBULOINTERSTITIAL NEPHRITIS [None]
